FAERS Safety Report 11881870 (Version 1)
Quarter: 2015Q4

REPORT INFORMATION
  Report Type: Other
  Country: JP (occurrence: JP)
  Receive Date: 20151231
  Receipt Date: 20151231
  Transmission Date: 20160305
  Serious: Yes (Other)
  Sender: FDA-Public Use
  Company Number: JP-LUPIN PHARMACEUTICALS INC.-2015-04400

PATIENT
  Age: 54 Year
  Sex: Female
  Weight: 44.1 kg

DRUGS (8)
  1. METHYLPREDNISOLONE. [Concomitant]
     Active Substance: METHYLPREDNISOLONE
     Indication: DERMATOMYOSITIS
     Dosage: 12 MG
     Route: 065
  2. IMIPENEM AND CILASTATIN [Suspect]
     Active Substance: CILASTATIN SODIUM\IMIPENEM
     Indication: MYCOBACTERIUM CHELONAE INFECTION
     Dosage: 0.5 GM
     Route: 065
  3. IMIPENEM AND CILASTATIN [Suspect]
     Active Substance: CILASTATIN SODIUM\IMIPENEM
     Route: 065
  4. CLARITHROMYCIN. [Suspect]
     Active Substance: CLARITHROMYCIN
     Indication: MYCOBACTERIUM CHELONAE INFECTION
     Dosage: 800 MG
     Route: 048
  5. CLARITHROMYCIN. [Suspect]
     Active Substance: CLARITHROMYCIN
     Route: 065
     Dates: end: 201208
  6. CYCLOSPORINE. [Concomitant]
     Active Substance: CYCLOSPORINE
     Indication: DERMATOMYOSITIS
     Dosage: 100 MG
     Route: 048
  7. TOBRAMYCIN. [Concomitant]
     Active Substance: TOBRAMYCIN
     Indication: MYCOBACTERIUM CHELONAE INFECTION
     Dosage: 90 MG
     Route: 065
  8. TOBRAMYCIN. [Concomitant]
     Active Substance: TOBRAMYCIN
     Route: 065

REACTIONS (2)
  - Hepatic function abnormal [Unknown]
  - Drug resistance [Unknown]

NARRATIVE: CASE EVENT DATE: 201208
